FAERS Safety Report 6346048-1 (Version None)
Quarter: 2009Q3

REPORT INFORMATION
  Report Type: 
  Country: None (occurrence: None)
  Receive Date: 20090903
  Receipt Date: 20090424
  Transmission Date: 20100115
  Serious: Yes (Other)
  Sender: FDA-Public Use
  Company Number: WAES 0904USA03982

PATIENT
  Age: 40 Year
  Sex: Male

DRUGS (1)
  1. MAXALT-MLT [Suspect]
     Indication: MIGRAINE
     Dosage: 10 MG/PRN/PO
     Route: 048

REACTIONS (4)
  - CHEST PAIN [None]
  - MIGRAINE [None]
  - MYOCARDIAL INFARCTION [None]
  - PAIN IN EXTREMITY [None]
